FAERS Safety Report 6539979-0 (Version None)
Quarter: 2010Q1

REPORT INFORMATION
  Report Type: 
  Country: None (occurrence: None)
  Receive Date: 20100115
  Receipt Date: 20100106
  Transmission Date: 20100710
  Serious: Yes (Hospitalization)
  Sender: FDA-Public Use
  Company Number: PHHY2010NL00701

PATIENT
  Sex: Male

DRUGS (4)
  1. ZOMETA [Suspect]
     Dosage: UNK
     Route: 042
     Dates: start: 20090915
  2. ZOMETA [Suspect]
     Dosage: UNK
     Route: 042
     Dates: start: 20091013
  3. ZOMETA [Suspect]
     Dosage: UNK
     Route: 042
     Dates: start: 20091110
  4. ZOMETA [Suspect]
     Dosage: UNK
     Dates: start: 20091208

REACTIONS (6)
  - BLOOD PRESSURE INCREASED [None]
  - CEREBROVASCULAR ACCIDENT [None]
  - CONFUSIONAL STATE [None]
  - EYELID PTOSIS [None]
  - HEADACHE [None]
  - SPEECH DISORDER [None]
